FAERS Safety Report 21325558 (Version 1)
Quarter: 2022Q3

REPORT INFORMATION
  Report Type: Spontaneous
  Country: US (occurrence: US)
  Receive Date: 20220912
  Receipt Date: 20220912
  Transmission Date: 20221026
  Serious: No
  Sender: FDA-Public Use
  Company Number: US-ALKERMES INC.-ALK-2022-004349

PATIENT
  Sex: Male

DRUGS (1)
  1. LYBALVI [Suspect]
     Active Substance: OLANZAPINE\SAMIDORPHAN L-MALATE
     Indication: Product used for unknown indication
     Dosage: UNK, QD
     Route: 048

REACTIONS (5)
  - Diarrhoea [Unknown]
  - Vomiting [Unknown]
  - Balance disorder [Unknown]
  - Decreased appetite [Unknown]
  - Dizziness [Unknown]
